FAERS Safety Report 23965690 (Version 1)
Quarter: 2024Q2

REPORT INFORMATION
  Report Type: Spontaneous
  Country: US (occurrence: US)
  Receive Date: 20240612
  Receipt Date: 20240612
  Transmission Date: 20240716
  Serious: No
  Sender: FDA-Public Use
  Company Number: US-IMMUNOGEN, INC.-US-IMGN-24-00391

PATIENT
  Sex: Female

DRUGS (2)
  1. ELAHERE [Suspect]
     Active Substance: MIRVETUXIMAB SORAVTANSINE-GYNX
     Indication: Ovarian cancer
     Dosage: UNK, UNK
     Route: 065
  2. ZIRABEV [Concomitant]
     Active Substance: BEVACIZUMAB-BVZR
     Indication: Ovarian cancer
     Dosage: UNK, UNK
     Route: 065

REACTIONS (4)
  - Pain [Unknown]
  - Hypoaesthesia [Unknown]
  - Paraesthesia [Unknown]
  - Abdominal pain upper [Unknown]
